FAERS Safety Report 20210841 (Version 2)
Quarter: 2022Q3

REPORT INFORMATION
  Report Type: Report from Study
  Country: US (occurrence: US)
  Receive Date: 20211221
  Receipt Date: 20220804
  Transmission Date: 20221027
  Serious: Yes (Other)
  Sender: FDA-Public Use
  Company Number: US-NOVARTISPH-NVSC2021US291254

PATIENT
  Sex: Female

DRUGS (2)
  1. PIQRAY [Suspect]
     Active Substance: ALPELISIB
     Indication: Product used for unknown indication
     Dosage: UNK
     Route: 065
  2. PIQRAY [Suspect]
     Active Substance: ALPELISIB
     Dosage: 250 MG, QD (TAKE 250MG (ONE 200MG TABLETS AND ONE 50MG TABLET)
     Route: 048

REACTIONS (12)
  - Neuropathy peripheral [Unknown]
  - Blood glucose increased [Unknown]
  - Ocular discomfort [Unknown]
  - Memory impairment [Unknown]
  - Muscle spasms [Unknown]
  - Dizziness [Unknown]
  - Neuralgia [Unknown]
  - Fatigue [Unknown]
  - Alopecia [Unknown]
  - Diarrhoea [Unknown]
  - Weight decreased [Unknown]
  - Drug ineffective [Unknown]
